FAERS Safety Report 19289155 (Version 2)
Quarter: 2021Q3

REPORT INFORMATION
  Report Type: Spontaneous
  Country: US (occurrence: US)
  Receive Date: 20210521
  Receipt Date: 20210811
  Transmission Date: 20211014
  Serious: No
  Sender: FDA-Public Use
  Company Number: US-PFIZER INC-2020480928

PATIENT
  Age: 51 Year
  Sex: Female

DRUGS (1)
  1. LYRICA [Suspect]
     Active Substance: PREGABALIN
     Indication: PAIN
     Dosage: 225 MG, 3X/DAY(1 CAPSULE TID (THREE TIMES A DAY))
     Route: 048

REACTIONS (2)
  - Frustration tolerance decreased [Unknown]
  - Prescribed overdose [Unknown]
